FAERS Safety Report 8819413 (Version 1)
Quarter: 2012Q4

REPORT INFORMATION
  Report Type: Spontaneous
  Country: US (occurrence: None)
  Receive Date: 20121004
  Receipt Date: 20121004
  Transmission Date: 20130627
  Serious: Yes (Hospitalization)
  Sender: FDA-Public Use
  Company Number: None

PATIENT
  Age: 63 Year
  Sex: Male
  Weight: 101.4 kg

DRUGS (1)
  1. SIMVASTATIN [Suspect]
     Indication: HYPERLIPIDEMIA
     Dosage: 20 MG AT BEDTIME PO
     Route: 048
     Dates: start: 20120313, end: 20120816

REACTIONS (6)
  - Asthenia [None]
  - Fall [None]
  - Renal failure acute [None]
  - Transaminases increased [None]
  - Rhabdomyolysis [None]
  - Viral myositis [None]
